FAERS Safety Report 21470998 (Version 2)
Quarter: 2022Q4

REPORT INFORMATION
  Report Type: Spontaneous
  Country: US (occurrence: US)
  Receive Date: 20221018
  Receipt Date: 20221226
  Transmission Date: 20230112
  Serious: Yes (Other)
  Sender: FDA-Public Use
  Company Number: US-BIOCODEX2-2021001126

PATIENT
  Sex: Male
  Weight: 43 kg

DRUGS (12)
  1. DIACOMIT [Suspect]
     Active Substance: STIRIPENTOL
     Indication: Epilepsy
     Dosage: 250MG,DISSOLVE 2 PACKS IN 10ML OF WARM WATER AND GIVE TWICE A DAY
     Route: 065
     Dates: start: 20210309
  2. DIACOMIT [Suspect]
     Active Substance: STIRIPENTOL
     Indication: Epilepsy
     Dosage: IN JULY-AUGUST 250MG [1 SACHET] IN THE MORNING AND 500MG [2 SACHETS] IN THE EVENING,
     Route: 065
  3. DIACOMIT [Suspect]
     Active Substance: STIRIPENTOL
     Indication: Epilepsy
     Dosage: PATIENT?S PARENTS DECIDED TO DECREASE DIACOMIT DOSE TO 250MG TWICE DAILY
  4. DIACOMIT [Suspect]
     Active Substance: STIRIPENTOL
     Indication: Epilepsy
     Dosage: INCREASE THE EVENING DOSE TO 500MG.
     Route: 065
     Dates: start: 20210911
  5. DIACOMIT [Suspect]
     Active Substance: STIRIPENTOL
     Indication: Epilepsy
     Dosage: THE PARENTS DECREASED DIACOMIT DOSE TO 250MG TWICE DAILY
  6. DIACOMIT [Suspect]
     Active Substance: STIRIPENTOL
     Indication: Epilepsy
     Dosage: 500MG TWICE DAILY
     Route: 048
  7. DIACOMIT [Suspect]
     Active Substance: STIRIPENTOL
     Indication: Epilepsy
     Dosage: ONE 250MG PACKET IN THE MORNING AND ONE 250MG PACKET IN THE EVENING
     Route: 048
  8. DIACOMIT [Suspect]
     Active Substance: STIRIPENTOL
     Indication: Epilepsy
     Dosage: 500MG IN THE MORNING AND 500MG IN THE EVENING BY MOUTH
     Route: 048
  9. DIACOMIT [Suspect]
     Active Substance: STIRIPENTOL
     Indication: Epilepsy
     Dosage: 250 MG BY MOUTH, TWICE DAILY
     Route: 048
  10. ONFI [Concomitant]
     Active Substance: CLOBAZAM
     Indication: Product used for unknown indication
     Route: 065
  11. DEPAKOTE [Concomitant]
     Active Substance: DIVALPROEX SODIUM
     Indication: Product used for unknown indication
     Route: 065
  12. CANNABIDIOL\HERBALS [Concomitant]
     Active Substance: CANNABIDIOL\HERBALS
     Indication: Product used for unknown indication
     Route: 065

REACTIONS (3)
  - Seizure [Recovered/Resolved]
  - Personality change [Unknown]
  - Product preparation issue [Unknown]
